FAERS Safety Report 10659090 (Version 1)
Quarter: 2014Q4

REPORT INFORMATION
  Report Type: Spontaneous
  Country: US (occurrence: None)
  Receive Date: 20141216
  Receipt Date: 20141216
  Transmission Date: 20150529
  Serious: Yes (Other)
  Sender: FDA-Public Use
  Company Number: None

PATIENT
  Age: 5 Year
  Sex: Female
  Weight: 13.4 kg

DRUGS (4)
  1. CARVEDILOL. [Concomitant]
     Active Substance: CARVEDILOL
  2. ENALAPRIL [Suspect]
     Active Substance: ENALAPRIL
     Indication: MITRAL VALVE INCOMPETENCE
     Route: 048
  3. ENALAPRIL [Suspect]
     Active Substance: ENALAPRIL
     Indication: AORTIC VALVE INCOMPETENCE
     Route: 048
  4. ASPIRIN. [Concomitant]
     Active Substance: ASPIRIN

REACTIONS (5)
  - Restlessness [None]
  - Product substitution issue [None]
  - Disturbance in attention [None]
  - Motor dysfunction [None]
  - Distractibility [None]

NARRATIVE: CASE EVENT DATE: 20140930
